FAERS Safety Report 10646460 (Version 2)
Quarter: 2015Q1

REPORT INFORMATION
  Report Type: Spontaneous
  Country: US (occurrence: US)
  Receive Date: 20141211
  Receipt Date: 20150115
  Transmission Date: 20150720
  Serious: No
  Sender: FDA-Public Use
  Company Number: US-GLAXOSMITHKLINE-US2014GSK019795

PATIENT
  Age: 70 Year
  Sex: Male

DRUGS (9)
  1. AMLODIPINE [Concomitant]
     Active Substance: AMLODIPINE BESYLATE
  2. COREG [Concomitant]
     Active Substance: CARVEDILOL
  3. SIMVASTATIN. [Concomitant]
     Active Substance: SIMVASTATIN
  4. VOTRIENT [Suspect]
     Active Substance: PAZOPANIB HYDROCHLORIDE
     Dosage: 600 MG, QD
  5. VITAMIN D [Concomitant]
     Active Substance: CHOLECALCIFEROL
  6. ASPIRIN. [Concomitant]
     Active Substance: ASPIRIN
  7. VOTRIENT [Suspect]
     Active Substance: PAZOPANIB HYDROCHLORIDE
     Indication: RENAL CELL CARCINOMA
     Dosage: 400 MG, BID
     Dates: start: 20141010
  8. AMBIEN [Concomitant]
     Active Substance: ZOLPIDEM TARTRATE
  9. NITRO PATCH [Concomitant]

REACTIONS (4)
  - Fatigue [Not Recovered/Not Resolved]
  - Abdominal distension [Recovering/Resolving]
  - Contusion [Recovering/Resolving]
  - Drug administration error [Unknown]

NARRATIVE: CASE EVENT DATE: 2014
